FAERS Safety Report 4718135-2 (Version None)
Quarter: 2005Q3

REPORT INFORMATION
  Report Type: 
  Country: None (occurrence: None)
  Receive Date: 20050719
  Receipt Date: 20050504
  Transmission Date: 20060218
  Serious: Yes (Hospitalization, Other)
  Sender: FDA-Public Use
  Company Number: 2005024965

PATIENT
  Age: 57 Year
  Sex: Male
  Weight: 68.9467 kg

DRUGS (12)
  1. CELEBREX [Suspect]
     Indication: BACK PAIN
     Dosage: SEE IMAGE
     Route: 048
     Dates: start: 20040801
  2. CELEBREX [Suspect]
     Indication: OSTEOARTHRITIS
     Dosage: SEE IMAGE
     Route: 048
     Dates: start: 20040801
  3. CELEBREX [Suspect]
     Indication: BACK PAIN
     Dosage: SEE IMAGE
     Route: 048
     Dates: start: 20040801
  4. CELEBREX [Suspect]
     Indication: OSTEOARTHRITIS
     Dosage: SEE IMAGE
     Route: 048
     Dates: start: 20040801
  5. AXOTAL [Concomitant]
  6. ZOLPIDEM TARTRATE [Concomitant]
  7. ALLOPURINOL [Concomitant]
  8. OLMESARTAN MEDOXOMIL (OLMESARTAN MEDOXOMIL) [Concomitant]
  9. ANTIGOUT PREPARATIONS (ANTIGOUT PREPARATIONS) [Concomitant]
  10. ORPHENADRINE CITRATE [Concomitant]
  11. BUTALBITAL [Concomitant]
  12. SERTRALINE HCL [Concomitant]

REACTIONS (7)
  - ARTHRITIS [None]
  - CONDITION AGGRAVATED [None]
  - ELECTROCARDIOGRAM ABNORMAL [None]
  - JOINT SWELLING [None]
  - MEMORY IMPAIRMENT [None]
  - MIGRAINE [None]
  - SYNCOPE [None]
